FAERS Safety Report 4540820-6 (Version None)
Quarter: 2004Q4

REPORT INFORMATION
  Report Type: 
  Country: None (occurrence: None)
  Receive Date: 20041229
  Receipt Date: 20041220
  Transmission Date: 20050328
  Serious: Yes (Death)
  Sender: FDA-Public Use
  Company Number: US-JNJFOC-20040902263

PATIENT
  Sex: Female
  Weight: 85.28 kg

DRUGS (1)
  1. RISPERDAL [Suspect]
     Indication: DRUG USE FOR UNKNOWN INDICATION
     Dosage: PATIENT WAS TAKING  .5 MG TABLET(S), BUT DOSAGE WAS UNKNOWN.
     Route: 049

REACTIONS (1)
  - DEATH [None]
